FAERS Safety Report 11060833 (Version 2)
Quarter: 2015Q2

REPORT INFORMATION
  Report Type: Spontaneous
  Country: CN (occurrence: CN)
  Receive Date: 20150423
  Receipt Date: 20150616
  Transmission Date: 20150821
  Serious: Yes (Hospitalization)
  Sender: FDA-Public Use
  Company Number: CN-ASTRAZENECA-2015SE37542

PATIENT
  Age: 77 Year
  Sex: Female

DRUGS (3)
  1. ZHENJUJIANGYAPIAN [Concomitant]
  2. PLENDIL [Suspect]
     Active Substance: FELODIPINE
     Indication: HYPERTENSION
     Route: 048
     Dates: start: 2013
  3. PLENDIL [Suspect]
     Active Substance: FELODIPINE
     Indication: BLOOD PRESSURE ABNORMAL
     Route: 048
     Dates: start: 2013

REACTIONS (2)
  - Blood glucose increased [Unknown]
  - Constipation [Unknown]

NARRATIVE: CASE EVENT DATE: 20150315
